FAERS Safety Report 16904929 (Version 1)
Quarter: 2019Q4

REPORT INFORMATION
  Report Type: Spontaneous
  Country: IN (occurrence: IN)
  Receive Date: 20191010
  Receipt Date: 20191010
  Transmission Date: 20200122
  Serious: Yes (Life-Threatening, Hospitalization, Other)
  Sender: FDA-Public Use
  Company Number: IN-ELI_LILLY_AND_COMPANY-IN201910003103

PATIENT
  Age: 25 Year
  Sex: Male

DRUGS (4)
  1. FLUPHENAZINE DECANOATE. [Suspect]
     Active Substance: FLUPHENAZINE DECANOATE
     Dosage: LONG-ACTING INJECTIONS DEPOT, INITIAL TEST DOSE OF 12.5 MG/D WAS GIVEN ON DAY 7 POST ADMISSION
     Route: 065
  2. OLANZAPINE. [Suspect]
     Active Substance: OLANZAPINE
     Indication: SCHIZOPHRENIA
     Dosage: 5 MG, DAILY MOUTH-DISSOLVING FORMULATION/ ORALLY DISINTEGRATING TABLETS (ODT) OF OLANZAPINE
     Route: 048
  3. OLANZAPINE. [Suspect]
     Active Substance: OLANZAPINE
     Dosage: TITRATED UPWARDS FROM 5 MG/D TO 15 MG/D OVER 14 DAYS
     Route: 048
  4. FLUPHENAZINE DECANOATE. [Suspect]
     Active Substance: FLUPHENAZINE DECANOATE
     Indication: SCHIZOPHRENIA
     Dosage: LONG-ACTING INJECTIONS DEPOT
     Route: 065

REACTIONS (1)
  - Pancreatitis necrotising [Recovered/Resolved]
